FAERS Safety Report 4382896-5 (Version None)
Quarter: 2004Q2

REPORT INFORMATION
  Report Type: 
  Country: None (occurrence: None)
  Receive Date: 20040603
  Receipt Date: 20040119
  Transmission Date: 20050107
  Serious: Yes (Hospitalization)
  Sender: FDA-Public Use
  Company Number: 200410410US

PATIENT

DRUGS (4)
  1. LOVENOX [Suspect]
  2. PYRIDOXINE HYDROCHLORIDE [Concomitant]
  3. TYROSINE [Concomitant]
  4. NICOTINAMIDE (TPN) [Concomitant]

REACTIONS (2)
  - HAEMATOMA [None]
  - INJECTION SITE HAEMORRHAGE [None]
